FAERS Safety Report 7125539-X (Version None)
Quarter: 2010Q4

REPORT INFORMATION
  Report Type: 
  Country: None (occurrence: None)
  Receive Date: 20101129
  Receipt Date: 20101119
  Transmission Date: 20110411
  Serious: Yes (Hospitalization)
  Sender: FDA-Public Use
  Company Number: JP-SANOFI-AVENTIS-2010SA019751

PATIENT
  Age: 76 Year
  Sex: Male
  Weight: 42.4 kg

DRUGS (22)
  1. LANTUS [Suspect]
     Indication: DIABETES MELLITUS
     Dosage: IN THE MORNING DOSE:7 UNIT(S)
     Route: 058
     Dates: start: 20090619, end: 20091008
  2. LANTUS [Suspect]
     Dosage: EVERY MORNING DOSE:4 UNIT(S)
     Route: 058
     Dates: start: 20091010, end: 20100716
  3. SOLOSTAR [Suspect]
     Dates: start: 20091010, end: 20100716
  4. NOVORIN [Suspect]
     Indication: DIABETES MELLITUS
     Dosage: DOSE AS USED: 6-6-4
     Route: 058
     Dates: start: 20100327, end: 20100329
  5. NOVORIN [Suspect]
     Dosage: DOSE AS USED: 8-7-4
     Dates: start: 20091017, end: 20100129
  6. NOVORIN [Suspect]
     Dosage: DOSE AS USED: 7-6-4
     Dates: start: 20100130, end: 20100326
  7. NOVORIN [Suspect]
     Dosage: DOSE AS USED: UNKNOWN
     Route: 058
     Dates: start: 20100330, end: 20100330
  8. NOVORAPID [Suspect]
     Indication: DIABETES MELLITUS
     Dosage: 6-6-4 UNITS/DAY
     Route: 058
     Dates: start: 20100331, end: 20100521
  9. NOVORAPID [Suspect]
     Dosage: 6-6-3 UNITS/DAY
     Route: 058
     Dates: start: 20100521, end: 20100716
  10. BLINDED THERAPY [Concomitant]
     Indication: PERIPHERAL ARTERIAL OCCLUSIVE DISEASE
     Route: 048
     Dates: start: 20090717, end: 20091016
  11. INVESTIGATIONAL DRUG [Concomitant]
     Indication: PERIPHERAL ARTERIAL OCCLUSIVE DISEASE
     Route: 048
     Dates: start: 20091017, end: 20100716
  12. PLETAL [Concomitant]
     Indication: THROMBOSIS PROPHYLAXIS
     Route: 048
     Dates: start: 20090319
  13. AMLODIPINE [Concomitant]
     Route: 048
     Dates: start: 20070427, end: 20100718
  14. ITOROL [Concomitant]
     Indication: PROPHYLAXIS
     Route: 048
     Dates: start: 20040810
  15. URSO 250 [Concomitant]
     Route: 048
     Dates: start: 20040713, end: 20100909
  16. FAMOTIDINE [Concomitant]
     Indication: REFLUX OESOPHAGITIS
     Route: 048
     Dates: start: 20040910
  17. FRANDOL [Concomitant]
     Indication: PROPHYLAXIS
     Route: 062
     Dates: start: 20040713
  18. EPADEL [Concomitant]
     Indication: THROMBOSIS PROPHYLAXIS
     Route: 048
     Dates: start: 20090814, end: 20100909
  19. LOPEMIN [Concomitant]
     Indication: PROPHYLAXIS AGAINST DIARRHOEA
     Route: 048
     Dates: start: 20090926, end: 20100818
  20. CYANOCOBALAMIN [Concomitant]
     Indication: DIABETIC NEUROPATHY
     Route: 048
     Dates: start: 20091113
  21. SODIUM BICARBONATE AND CALCIUM CHLORIDE DIHYDRATE AND SODIUM CHLORIDE [Concomitant]
     Indication: PROPHYLAXIS
     Route: 047
     Dates: start: 20080526
  22. KARY UNI [Concomitant]
     Indication: CATARACT
     Route: 047
     Dates: start: 20080609

REACTIONS (2)
  - DECREASED APPETITE [None]
  - HYPOGLYCAEMIA [None]
